FAERS Safety Report 7819897-8 (Version None)
Quarter: 2011Q4

REPORT INFORMATION
  Report Type: 
  Country: None (occurrence: None)
  Receive Date: 20111018
  Receipt Date: 20110707
  Transmission Date: 20120403
  Serious: No
  Sender: FDA-Public Use
  Company Number: US-ASTRAZENECA-2011SE33471

PATIENT
  Age: 69 Year
  Sex: Female

DRUGS (3)
  1. ANITHYPERTENSIVE [Concomitant]
     Indication: HYPERTENSION
  2. HYDREA [Concomitant]
     Indication: BLOOD DISORDER
  3. SYMBICORT [Suspect]
     Dosage: 160/4.5, 1 PUFF DAILY
     Route: 055
     Dates: start: 20090101

REACTIONS (2)
  - INAPPROPRIATE SCHEDULE OF DRUG ADMINISTRATION [None]
  - NASOPHARYNGITIS [None]
